FAERS Safety Report 23561425 (Version 1)
Quarter: 2024Q1

REPORT INFORMATION
  Report Type: Spontaneous
  Country: JP (occurrence: JP)
  Receive Date: 20240224
  Receipt Date: 20240224
  Transmission Date: 20240410
  Serious: Yes (Death, Other)
  Sender: FDA-Public Use
  Company Number: JP-AMGEN-JPNSP2024038209

PATIENT
  Sex: Male

DRUGS (5)
  1. BLINCYTO [Suspect]
     Active Substance: BLINATUMOMAB
     Indication: Philadelphia chromosome positive
     Dosage: UNK, DRIP INFUSION
     Route: 042
  2. BLINCYTO [Suspect]
     Active Substance: BLINATUMOMAB
     Indication: B precursor type acute leukaemia
  3. INOTUZUMAB OZOGAMICIN [Concomitant]
     Active Substance: INOTUZUMAB OZOGAMICIN
     Dosage: UNK
  4. DASATINIB [Concomitant]
     Active Substance: DASATINIB
     Dosage: UNK
  5. PONATINIB [Concomitant]
     Active Substance: PONATINIB
     Dosage: UNK

REACTIONS (6)
  - Blindness unilateral [Not Recovered/Not Resolved]
  - Pneumonia [Fatal]
  - B-cell type acute leukaemia [Unknown]
  - Myelosuppression [Unknown]
  - Haemorrhage [Unknown]
  - Infection [Unknown]
